FAERS Safety Report 7354614-X (Version None)
Quarter: 2011Q1

REPORT INFORMATION
  Report Type: 
  Country: None (occurrence: None)
  Receive Date: 20110304
  Receipt Date: 20090626
  Transmission Date: 20110831
  Serious: Yes (Hospitalization)
  Sender: FDA-Public Use
  Company Number: UK-2009-00195

PATIENT
  Age: 78 Year
  Sex: Female

DRUGS (8)
  1. AMLODIPINE [Concomitant]
  2. SIMVASTATIN [Suspect]
     Indication: HYPERLIPIDAEMIA
     Dosage: (40-80MG (40 MG, 1 IN 1 D), ORAL) (40MG-80MG (80 MG, 1 IN 1 D), ORAL)
     Route: 048
     Dates: start: 20090516
  3. QUININE SULFATE [Concomitant]
  4. AMITRIPTYLINE HCL [Concomitant]
  5. ALLOPURINOL [Concomitant]
  6. ATENOLOL [Concomitant]
  7. ASPIRIN [Concomitant]
  8. FRUSEMIDE [Concomitant]

REACTIONS (3)
  - RHABDOMYOLYSIS [None]
  - MUSCULOSKELETAL STIFFNESS [None]
  - MOBILITY DECREASED [None]
